FAERS Safety Report 9809392 (Version 1)
Quarter: 2014Q1

REPORT INFORMATION
  Report Type: Spontaneous
  Country: GB (occurrence: GB)
  Receive Date: 20140110
  Receipt Date: 20140110
  Transmission Date: 20141002
  Serious: Yes (Life-Threatening, Other)
  Sender: FDA-Public Use
  Company Number: PHHY2014GB001800

PATIENT
  Age: 72 Year
  Sex: Male
  Weight: 88.2 kg

DRUGS (7)
  1. METRONIDAZOLE [Suspect]
     Indication: CELLULITIS
     Dosage: 400 MG, UNK
     Route: 048
     Dates: start: 20131219, end: 20131223
  2. TEICOPLANIN [Suspect]
     Indication: CELLULITIS
     Dosage: 600 MG, QD
     Route: 042
     Dates: start: 20131219, end: 20131223
  3. HUMULIN [Concomitant]
  4. METFORMIN [Concomitant]
  5. SIMVASTATIN [Concomitant]
  6. OMEPRAZOLE [Concomitant]
  7. CITALOPRAM [Concomitant]

REACTIONS (2)
  - Liver injury [Recovering/Resolving]
  - Liver function test abnormal [Unknown]
